FAERS Safety Report 4777152-7 (Version None)
Quarter: 2005Q3

REPORT INFORMATION
  Report Type: 
  Country: None (occurrence: None)
  Receive Date: 20050923
  Receipt Date: 20050906
  Transmission Date: 20060218
  Serious: Yes (Hospitalization)
  Sender: FDA-Public Use
  Company Number: US-ROCHE-417053

PATIENT
  Age: 52 Year
  Sex: Female
  Weight: 56.7 kg

DRUGS (2)
  1. PEGASYS [Suspect]
     Route: 058
     Dates: start: 20050413, end: 20050824
  2. COPEGUS [Suspect]
     Route: 048
     Dates: start: 20050413, end: 20050816

REACTIONS (4)
  - DEHYDRATION [None]
  - HAEMOGLOBIN DECREASED [None]
  - PSORIASIS [None]
  - WHITE BLOOD CELL COUNT DECREASED [None]
